FAERS Safety Report 4288490-9 (Version None)
Quarter: 2004Q1

REPORT INFORMATION
  Report Type: 
  Country: None (occurrence: None)
  Receive Date: 20040205
  Receipt Date: 20040127
  Transmission Date: 20041129
  Serious: No
  Sender: FDA-Public Use
  Company Number: TAP2003Q00004

PATIENT
  Age: 69 Year
  Sex: Male
  Weight: 81.6475 kg

DRUGS (1)
  1. PREVACID [Suspect]
     Indication: ABDOMINAL PAIN UPPER
     Dosage: 15 MG, ONCE, ORAL
     Route: 048
     Dates: start: 20021231, end: 20021231

REACTIONS (9)
  - DIZZINESS [None]
  - DYSGEUSIA [None]
  - FATIGUE [None]
  - PAROSMIA [None]
  - SOMNOLENCE [None]
  - TRANSIENT ISCHAEMIC ATTACK [None]
  - URINARY TRACT INFECTION [None]
  - VERTIGO [None]
  - VISION BLURRED [None]
